FAERS Safety Report 13741978 (Version 7)
Quarter: 2018Q2

REPORT INFORMATION
  Report Type: Report from Study
  Country: AR (occurrence: AR)
  Receive Date: 20170711
  Receipt Date: 20180629
  Transmission Date: 20180711
  Serious: Yes (Hospitalization, Other)
  Sender: FDA-Public Use
  Company Number: AR-ROCHE-1961234

PATIENT
  Age: 67 Year
  Sex: Female

DRUGS (9)
  1. XOLAIR [Suspect]
     Active Substance: OMALIZUMAB
     Dosage: (1 AMPOULE OF 150 MG MONTHLY IN THE BEGINNING OF OCT 2017)
     Route: 058
     Dates: start: 201710
  2. XOLAIR [Suspect]
     Active Substance: OMALIZUMAB
     Dosage: (AT THE BEGINNING OF DEC 2016)
     Route: 058
     Dates: start: 201612
  3. XOLAIR [Suspect]
     Active Substance: OMALIZUMAB
     Dosage: 2 DF (150 MG), QMO
     Route: 058
  4. ROGASTRIL [Concomitant]
     Indication: PRODUCT USED FOR UNKNOWN INDICATION
     Route: 065
  5. XOLAIR [Suspect]
     Active Substance: OMALIZUMAB
     Dosage: (1 AMPOULE OF 150 MG MONTHLY IN THE BEGINNING OF OCT 2017)
     Route: 058
     Dates: start: 201710
  6. ALPLAX [Concomitant]
     Active Substance: ALPRAZOLAM
     Indication: PRODUCT USED FOR UNKNOWN INDICATION
     Route: 065
  7. XOLAIR [Suspect]
     Active Substance: OMALIZUMAB
     Indication: ASTHMA
     Dosage: (2 AMPOULES OF 150 MG MONTHLY)
     Route: 058
     Dates: start: 20130325
  8. XOLAIR [Suspect]
     Active Substance: OMALIZUMAB
     Dosage: (BY THE END OF DEC 2016)
     Route: 058
     Dates: start: 201612
  9. LANZOPRAL [Concomitant]
     Active Substance: LANSOPRAZOLE
     Indication: PRODUCT USED FOR UNKNOWN INDICATION
     Route: 065

REACTIONS (25)
  - Bronchial disorder [Not Recovered/Not Resolved]
  - Hiatus hernia [Not Recovered/Not Resolved]
  - Gastrointestinal fungal infection [Recovering/Resolving]
  - Emotional disorder [Not Recovered/Not Resolved]
  - Malaise [Not Recovered/Not Resolved]
  - Irritable bowel syndrome [Not Recovered/Not Resolved]
  - Skin papilloma [Not Recovered/Not Resolved]
  - Agitation [Unknown]
  - Inappropriate schedule of drug administration [Unknown]
  - Abdominal discomfort [Not Recovered/Not Resolved]
  - Anaemia [Recovering/Resolving]
  - Dust allergy [Not Recovered/Not Resolved]
  - Sensitivity to weather change [Not Recovered/Not Resolved]
  - Temperature intolerance [Not Recovered/Not Resolved]
  - Respiratory disorder [Not Recovered/Not Resolved]
  - Gait disturbance [Not Recovered/Not Resolved]
  - Nervousness [Not Recovered/Not Resolved]
  - Foot deformity [Not Recovered/Not Resolved]
  - Pancreatitis [Not Recovered/Not Resolved]
  - Asthma [Not Recovered/Not Resolved]
  - Cough [Not Recovered/Not Resolved]
  - Asthmatic crisis [Recovering/Resolving]
  - Pruritus allergic [Not Recovered/Not Resolved]
  - Dysphonia [Not Recovered/Not Resolved]
  - Expired product administered [Unknown]

NARRATIVE: CASE EVENT DATE: 201612
